FAERS Safety Report 9337802 (Version 2)
Quarter: 2013Q3

REPORT INFORMATION
  Report Type: Spontaneous
  Country: US (occurrence: US)
  Receive Date: 20130607
  Receipt Date: 20130710
  Transmission Date: 20140515
  Serious: No
  Sender: FDA-Public Use
  Company Number: US-009507513-1306USA003661

PATIENT
  Age: 46 Year
  Sex: Female
  Weight: 81.63 kg

DRUGS (5)
  1. CLARITIN [Suspect]
     Indication: RESPIRATORY TRACT CONGESTION
     Dosage: 10 MG, UNKNOWN
     Route: 048
     Dates: start: 201302, end: 201304
  2. CLARITIN [Suspect]
     Indication: RHINORRHOEA
  3. ONE-A-DAY ESSENTIAL VITAMINS [Concomitant]
     Indication: PRODUCT USED FOR UNKNOWN INDICATION
     Dosage: UNK, UNKNOWN
  4. FIBER (UNSPECIFIED) [Concomitant]
     Indication: PRODUCT USED FOR UNKNOWN INDICATION
     Dosage: UNK, UNKNOWN
  5. OMEGA-3 MARINE TRIGLYCERIDES [Concomitant]
     Indication: PRODUCT USED FOR UNKNOWN INDICATION
     Dosage: UNK, UNKNOWN

REACTIONS (1)
  - Drug ineffective [Unknown]
